FAERS Safety Report 17426825 (Version 3)
Quarter: 2020Q2

REPORT INFORMATION
  Report Type: Spontaneous
  Country: US (occurrence: US)
  Receive Date: 20200218
  Receipt Date: 20200403
  Transmission Date: 20200713
  Serious: No
  Sender: FDA-Public Use
  Company Number: US-UNITED THERAPEUTICS-UNT-2020-002544

PATIENT
  Sex: Female
  Weight: 102.95 kg

DRUGS (2)
  1. REMODULIN [Suspect]
     Active Substance: TREPROSTINIL
     Indication: PULMONARY ARTERIAL HYPERTENSION
     Dosage: 0.074 ?G/KG, CONTINUING
     Route: 058
     Dates: start: 20170817
  2. AMBRISENTAN [Concomitant]
     Active Substance: AMBRISENTAN
     Indication: PRODUCT USED FOR UNKNOWN INDICATION
     Dosage: UNK
     Route: 065

REACTIONS (7)
  - Product leakage [Unknown]
  - Sluggishness [Unknown]
  - Flushing [Unknown]
  - Diarrhoea [Unknown]
  - Irritability [Unknown]
  - Musculoskeletal stiffness [Unknown]
  - Hot flush [Unknown]
